FAERS Safety Report 6043063-2 (Version None)
Quarter: 2009Q1

REPORT INFORMATION
  Report Type: 
  Country: None (occurrence: None)
  Receive Date: 20090119
  Receipt Date: 20090113
  Transmission Date: 20090719
  Serious: Yes (Other)
  Sender: FDA-Public Use
  Company Number: US-BAYER-200841177NA

PATIENT
  Age: 40 Year
  Sex: Female
  Weight: 58 kg

DRUGS (2)
  1. AVELOX [Suspect]
     Indication: DRUG USE FOR UNKNOWN INDICATION
     Dosage: UNIT DOSE: 400 MG
     Dates: start: 20081217, end: 20081218
  2. CIPRO [Suspect]
     Indication: DRUG USE FOR UNKNOWN INDICATION
     Dates: start: 20081218

REACTIONS (11)
  - BALANCE DISORDER [None]
  - BURNING SENSATION [None]
  - DELUSION [None]
  - DISORIENTATION [None]
  - DIZZINESS [None]
  - DYSSTASIA [None]
  - FEELING HOT [None]
  - HEADACHE [None]
  - INCOHERENT [None]
  - MOTOR DYSFUNCTION [None]
  - RETCHING [None]
